FAERS Safety Report 24126462 (Version 1)
Quarter: 2024Q3

REPORT INFORMATION
  Report Type: Spontaneous
  Country: JP (occurrence: JP)
  Receive Date: 20240723
  Receipt Date: 20240723
  Transmission Date: 20241016
  Serious: Yes (Other)
  Sender: GALDERMA
  Company Number: JP-GALDERMA-JP2024011090

PATIENT

DRUGS (1)
  1. ROZEX (METRONIDAZOLE) [Suspect]
     Active Substance: METRONIDAZOLE
     Indication: Wound complication
     Dosage: 1 DOSAGE FORM
     Route: 061
     Dates: end: 20240301

REACTIONS (1)
  - Wound secretion [Not Recovered/Not Resolved]
